FAERS Safety Report 26197865 (Version 1)
Quarter: 2025Q4

REPORT INFORMATION
  Report Type: Spontaneous
  Country: CN (occurrence: CN)
  Receive Date: 20251224
  Receipt Date: 20251224
  Transmission Date: 20260117
  Serious: Yes (Other)
  Sender: GLAXOSMITHKLINE
  Company Number: CN-GSK-CN2025CHI159629

PATIENT
  Sex: Female
  Weight: 78 kg

DRUGS (1)
  1. FLUTICASONE PROPIONATE\SALMETEROL XINAFOATE [Suspect]
     Active Substance: FLUTICASONE PROPIONATE\SALMETEROL XINAFOATE
     Indication: Asthma
     Dosage: 250 UG, BID

REACTIONS (20)
  - Hypokalaemia [Recovered/Resolved]
  - Pneumonitis [Recovered/Resolved]
  - Dizziness [Recovering/Resolving]
  - Decreased appetite [Recovered/Resolved]
  - Aortic arteriosclerosis [Recovered/Resolved]
  - Arteriosclerosis coronary artery [Recovered/Resolved]
  - Atrial fibrillation [Recovered/Resolved]
  - Ventricular arrhythmia [Recovered/Resolved]
  - Thoracic vertebral fracture [Recovered/Resolved]
  - Renal atrophy [Recovered/Resolved]
  - Nephrolithiasis [Recovered/Resolved]
  - Condition aggravated [Recovered/Resolved]
  - Hypertension [Recovering/Resolving]
  - Atrial flutter [Recovered/Resolved]
  - Coronary artery disease [Recovered/Resolved]
  - Hiatus hernia [Recovered/Resolved]
  - Asthenia [Recovering/Resolving]
  - Asthma [Recovered/Resolved]
  - Renal cyst [Recovered/Resolved]
  - Inappropriate schedule of product administration [Unknown]
